FAERS Safety Report 8019748-5 (Version None)
Quarter: 2012Q1

REPORT INFORMATION
  Report Type: 
  Country: None (occurrence: None)
  Receive Date: 20120103
  Receipt Date: 20111222
  Transmission Date: 20120608
  Serious: Yes (Hospitalization)
  Sender: FDA-Public Use
  Company Number: JP-GLAXOSMITHKLINE-B0771561A

PATIENT
  Sex: Female

DRUGS (6)
  1. ARIXTRA [Suspect]
     Indication: POSTOPERATIVE CARE
     Dosage: 1.5MG PER DAY
     Route: 058
     Dates: start: 20111208, end: 20111217
  2. ETODOLAC [Concomitant]
     Indication: POSTOPERATIVE CARE
     Dosage: 400MG PER DAY
     Route: 048
     Dates: start: 20111212
  3. MUCOSTA [Concomitant]
     Indication: PROPHYLAXIS
     Dosage: 300MG PER DAY
     Route: 048
     Dates: start: 20111129
  4. RABEPRAZOLE SODIUM [Concomitant]
     Indication: PRODUCT USED FOR UNKNOWN INDICATION
     Dosage: 10MG PER DAY
     Route: 048
     Dates: start: 20111129
  5. ROCALTROL [Concomitant]
     Indication: FEMUR FRACTURE
     Dosage: .25MG PER DAY
     Route: 048
     Dates: start: 20111129
  6. AMLODIPINE [Concomitant]
     Indication: PRODUCT USED FOR UNKNOWN INDICATION
     Dosage: 5MG PER DAY
     Route: 048
     Dates: start: 20111129

REACTIONS (2)
  - BRAIN OEDEMA [None]
  - CEREBRAL HAEMORRHAGE [None]
